FAERS Safety Report 19980873 (Version 1)
Quarter: 2021Q4

REPORT INFORMATION
  Report Type: Report from Study
  Country: None (occurrence: US)
  Receive Date: 20211022
  Receipt Date: 20211022
  Transmission Date: 20220303
  Serious: Yes (Hospitalization)
  Sender: FDA-Public Use
  Company Number: US-ABBVIE-21K-163-4123090-00

PATIENT
  Age: 69 Year
  Sex: Female

DRUGS (4)
  1. SYNTHROID [Suspect]
     Active Substance: LEVOTHYROXINE SODIUM
     Indication: Hypothyroidism
     Route: 048
     Dates: start: 2011, end: 20211008
  2. ADVAIR HFA [Concomitant]
     Active Substance: FLUTICASONE PROPIONATE\SALMETEROL XINAFOATE
     Indication: Chronic obstructive pulmonary disease
  3. LEVOTHYROXINE [Concomitant]
     Active Substance: LEVOTHYROXINE
     Indication: Hypothyroidism
  4. CANNABIS SATIVA SUBSP. INDICA TOP [Concomitant]
     Active Substance: CANNABIS SATIVA SUBSP. INDICA TOP
     Indication: Fibromyalgia
     Dosage: MEDICAL GUMMIES

REACTIONS (28)
  - Staphylococcal infection [Not Recovered/Not Resolved]
  - Fatigue [Not Recovered/Not Resolved]
  - Sluggishness [Not Recovered/Not Resolved]
  - Somnolence [Not Recovered/Not Resolved]
  - Confusional state [Unknown]
  - Hypoacusis [Not Recovered/Not Resolved]
  - Ear disorder [Not Recovered/Not Resolved]
  - Drug level decreased [Unknown]
  - Malaise [Unknown]
  - Arrhythmia [Recovering/Resolving]
  - Thyroid disorder [Unknown]
  - Thyroid hormones decreased [Unknown]
  - Diarrhoea [Unknown]
  - Asthenia [Unknown]
  - Constipation [Unknown]
  - Body temperature fluctuation [Unknown]
  - Fibromyalgia [Not Recovered/Not Resolved]
  - Laboratory test abnormal [Unknown]
  - Gout [Unknown]
  - Therapeutic product effect variable [Unknown]
  - Renal function test abnormal [Unknown]
  - Mass [Unknown]
  - Induration [Unknown]
  - Cystic fibrosis [Unknown]
  - Rales [Unknown]
  - Cardiac failure [Unknown]
  - Product taste abnormal [Unknown]
  - Expired product administered [Unknown]

NARRATIVE: CASE EVENT DATE: 20200101
